FAERS Safety Report 9500389 (Version 1)
Quarter: 2013Q1

REPORT INFORMATION
  Report Type: Spontaneous
  Country: US (occurrence: None)
  Receive Date: 20130107
  Receipt Date: 20130107
  Transmission Date: 20140127
  Serious: Yes (Hospitalization)
  Sender: FDA-Public Use
  Company Number: PHEH2012US017766

PATIENT
  Age: 52 Year
  Sex: Male

DRUGS (2)
  1. GILENYA (FTY) [Suspect]
     Route: 048
  2. AVONEX (INTERFERON BETA-1A) [Suspect]

REACTIONS (1)
  - Multiple sclerosis [None]
